FAERS Safety Report 6263354-X (Version None)
Quarter: 2009Q3

REPORT INFORMATION
  Report Type: 
  Country: None (occurrence: None)
  Receive Date: 20090710
  Receipt Date: 20080625
  Transmission Date: 20100115
  Serious: No
  Sender: FDA-Public Use
  Company Number: A0734969A

PATIENT
  Age: 87 Year
  Sex: Female

DRUGS (5)
  1. FLOVENT [Suspect]
     Indication: ASTHMA
     Dosage: 1PUFF PER DAY
     Route: 055
  2. NASACORT [Concomitant]
  3. THYROID MEDICATION [Concomitant]
  4. LABETALOL HCL [Concomitant]
  5. FERROUS SULFATE TAB [Concomitant]

REACTIONS (3)
  - ARTHRALGIA [None]
  - ASTHENIA [None]
  - BLOOD CATECHOLAMINES INCREASED [None]
